FAERS Safety Report 15658222 (Version 11)
Quarter: 2020Q4

REPORT INFORMATION
  Report Type: Report from Study
  Country: TR (occurrence: TR)
  Receive Date: 20181126
  Receipt Date: 20201019
  Transmission Date: 20210113
  Serious: Yes (Death, Hospitalization)
  Sender: FDA-Public Use
  Company Number: TR-EISAI MEDICAL RESEARCH-EC-2018-048178

PATIENT
  Age: 75 Year
  Sex: Female
  Weight: 65 kg

DRUGS (10)
  1. LENVATINIB [Suspect]
     Active Substance: LENVATINIB
     Route: 048
     Dates: start: 20181116
  2. CANDEXIL PLUS [Concomitant]
     Route: 048
     Dates: start: 199801, end: 20181121
  3. GERALGINE [Concomitant]
     Route: 048
     Dates: start: 201802, end: 20181121
  4. SIPRAKTIN [Concomitant]
     Route: 048
     Dates: start: 201807, end: 20181121
  5. LUSTRAL [Concomitant]
     Active Substance: SERTRALINE HYDROCHLORIDE
     Route: 048
     Dates: start: 201310, end: 20181121
  6. EUTHYROX [Concomitant]
     Active Substance: LEVOTHYROXINE SODIUM
     Route: 048
     Dates: start: 200301, end: 20181121
  7. LENVATINIB [Suspect]
     Active Substance: LENVATINIB
     Indication: ENDOMETRIAL CANCER
     Route: 048
     Dates: start: 20181025, end: 20181104
  8. PEMBROLIZUMAB. [Suspect]
     Active Substance: PEMBROLIZUMAB
     Indication: ENDOMETRIAL CANCER
     Route: 041
     Dates: start: 20181025, end: 20181025
  9. PEMBROLIZUMAB. [Suspect]
     Active Substance: PEMBROLIZUMAB
     Route: 041
     Dates: start: 20181116, end: 20181116
  10. BELOC-ZOK [Concomitant]
     Active Substance: METOPROLOL SUCCINATE
     Route: 048
     Dates: start: 199801, end: 20181121

REACTIONS (1)
  - Hypertension [Recovered/Resolved]

NARRATIVE: CASE EVENT DATE: 20181117
